FAERS Safety Report 22393604 (Version 1)
Quarter: 2023Q2

REPORT INFORMATION
  Report Type: Spontaneous
  Country: KR (occurrence: KR)
  Receive Date: 20230601
  Receipt Date: 20230601
  Transmission Date: 20230722
  Serious: Yes (Death)
  Sender: FDA-Public Use
  Company Number: KR-ORGANON-O2305KOR003100

PATIENT
  Age: 60 Year
  Sex: Male
  Weight: 52.6 kg

DRUGS (4)
  1. COZAAR [Suspect]
     Active Substance: LOSARTAN POTASSIUM
     Indication: Cardiac failure congestive
     Dosage: 25 MILLIGRAM, QD, TABLET UNCLASSIFIED
     Route: 048
     Dates: start: 20190627, end: 20200306
  2. ASPIRIN [Concomitant]
     Active Substance: ASPIRIN
     Indication: Angina pectoris
     Dosage: 100 MILLIGRAM, QD, TABLET UNCLASSIFIED
     Route: 048
     Dates: start: 20080221, end: 20200306
  3. FAMOTIDINE [Concomitant]
     Active Substance: FAMOTIDINE
     Indication: Prophylaxis
     Dosage: 20 MILLIGRAM, QD, TABLET UNCLASSIFIED
     Route: 048
     Dates: start: 20171115, end: 20200306
  4. TORSEMIDE [Concomitant]
     Active Substance: TORSEMIDE
     Indication: Hypertrophic cardiomyopathy
     Dosage: 5 MILLIGRAM, QD, TABLET UNCLASSIFIED
     Route: 048
     Dates: start: 20190627, end: 20200306

REACTIONS (1)
  - Cardiogenic shock [Fatal]

NARRATIVE: CASE EVENT DATE: 20200305
